FAERS Safety Report 14881660 (Version 1)
Quarter: 2018Q2

REPORT INFORMATION
  Report Type: Spontaneous
  Country: US (occurrence: US)
  Receive Date: 20180425
  Receipt Date: 20180425
  Transmission Date: 20180711
  Serious: No
  Sender: FDA-Public Use
  Company Number: None

PATIENT
  Age: 33 Year
  Sex: Female
  Weight: 67.5 kg

DRUGS (1)
  1. CYCLOBENZAPRINE. [Suspect]
     Active Substance: CYCLOBENZAPRINE
     Indication: MUSCLE STRAIN
     Dosage: ?          QUANTITY:30 TABLET(S);?
     Route: 048
     Dates: start: 20180311, end: 20180314

REACTIONS (10)
  - Paranoia [None]
  - Heart rate increased [None]
  - Blood pressure increased [None]
  - Chest pain [None]
  - Vision blurred [None]
  - Hallucination [None]
  - Muscle rigidity [None]
  - Abdominal pain [None]
  - Dyspnoea [None]
  - Tinnitus [None]

NARRATIVE: CASE EVENT DATE: 20180312
